FAERS Safety Report 25213196 (Version 2)
Quarter: 2025Q2

REPORT INFORMATION
  Report Type: Spontaneous
  Country: JP (occurrence: JP)
  Receive Date: 20250418
  Receipt Date: 20250506
  Transmission Date: 20250716
  Serious: Yes (Death, Other)
  Sender: MERCK SHARP & DOHME LLC
  Company Number: JP-009507513-2277475

PATIENT
  Age: 58 Year
  Sex: Female

DRUGS (1)
  1. KEYTRUDA [Suspect]
     Active Substance: PEMBROLIZUMAB
     Indication: Triple negative breast cancer
     Route: 041
     Dates: start: 202304, end: 202401

REACTIONS (11)
  - Tumour embolism [Fatal]
  - Right ventricular failure [Unknown]
  - Altered state of consciousness [Unknown]
  - Respiratory failure [Unknown]
  - Renal tubular injury [Unknown]
  - Pulmonary artery dilatation [Unknown]
  - Malignant neoplasm progression [Unknown]
  - Renal impairment [Unknown]
  - Blood pressure decreased [Unknown]
  - Respiratory depression [Unknown]
  - Depression [Unknown]

NARRATIVE: CASE EVENT DATE: 20250101
